FAERS Safety Report 10336068 (Version 1)
Quarter: 2014Q3

REPORT INFORMATION
  Report Type: Spontaneous
  Country: US (occurrence: US)
  Receive Date: 20140723
  Receipt Date: 20140723
  Transmission Date: 20150326
  Serious: No
  Sender: FDA-Public Use
  Company Number: US-BRISTOL-MYERS SQUIBB COMPANY-19634336

PATIENT
  Age: 60 Year
  Sex: Female

DRUGS (5)
  1. TREPROSTINIL [Suspect]
     Active Substance: TREPROSTINIL
     Dosage: REG1?RESTART 11OCT2013
  2. LETAIRIS [Suspect]
     Active Substance: AMBRISENTAN
     Route: 048
     Dates: start: 20121016
  3. COUMADIN [Suspect]
     Active Substance: WARFARIN SODIUM
     Dosage: REG1?RESTART 11OCT2013
  4. TADALAFIL [Suspect]
     Active Substance: TADALAFIL
     Dosage: REG1?RESTART 11OCT2013
  5. SPIRONOLACTONE. [Suspect]
     Active Substance: SPIRONOLACTONE
     Dosage: REG1?RESTART 11OCT2013

REACTIONS (1)
  - Rash [Unknown]

NARRATIVE: CASE EVENT DATE: 20131001
